FAERS Safety Report 20923383 (Version 3)
Quarter: 2025Q2

REPORT INFORMATION
  Report Type: Spontaneous
  Country: US (occurrence: US)
  Receive Date: 20220607
  Receipt Date: 20250609
  Transmission Date: 20250716
  Serious: Yes (Life-Threatening, Hospitalization, Other)
  Sender: AUROBINDO
  Company Number: US-MLMSERVICE-20220518-3564765-1

PATIENT
  Age: 97 Year
  Sex: Female

DRUGS (6)
  1. DONEPEZIL [Suspect]
     Active Substance: DONEPEZIL
     Indication: Dementia
     Route: 065
  2. ASPIRIN [Concomitant]
     Active Substance: ASPIRIN
     Indication: Product used for unknown indication
     Route: 065
  3. LABETALOL [Concomitant]
     Active Substance: LABETALOL
     Indication: Product used for unknown indication
     Route: 065
  4. OXYBUTYNIN [Concomitant]
     Active Substance: OXYBUTYNIN
     Indication: Product used for unknown indication
     Route: 065
  5. PRAVASTATIN [Concomitant]
     Active Substance: PRAVASTATIN
     Indication: Product used for unknown indication
     Route: 065
  6. ASPIRIN [Concomitant]
     Active Substance: ASPIRIN
     Indication: Product used for unknown indication
     Route: 065

REACTIONS (7)
  - Cerebral infarction [Unknown]
  - Toxicity to various agents [Unknown]
  - Supraventricular extrasystoles [Recovered/Resolved]
  - Sinus bradycardia [Recovering/Resolving]
  - Hypertension [Recovered/Resolved]
  - Syncope [Recovered/Resolved]
  - Unresponsive to stimuli [Recovered/Resolved]
